FAERS Safety Report 18330132 (Version 3)
Quarter: 2020Q4

REPORT INFORMATION
  Report Type: Spontaneous
  Country: US (occurrence: US)
  Receive Date: 20200930
  Receipt Date: 20201208
  Transmission Date: 20210113
  Serious: Yes (Other)
  Sender: FDA-Public Use
  Company Number: US-PFIZER INC-2020377328

PATIENT
  Age: 53 Year
  Sex: Female

DRUGS (1)
  1. XELJANZ XR [Suspect]
     Active Substance: TOFACITINIB CITRATE
     Dosage: 11 MG
     Dates: start: 202009, end: 202010

REACTIONS (6)
  - Immune system disorder [Unknown]
  - Blood test abnormal [Unknown]
  - Illness [Recovering/Resolving]
  - Decreased appetite [Unknown]
  - Condition aggravated [Unknown]
  - Haemorrhage [Unknown]
